FAERS Safety Report 25532474 (Version 2)
Quarter: 2025Q3

REPORT INFORMATION
  Report Type: Spontaneous
  Country: US (occurrence: US)
  Receive Date: 20250709
  Receipt Date: 20250808
  Transmission Date: 20251020
  Serious: No
  Sender: AMGEN
  Company Number: US-PFIZER INC-202500137279

PATIENT
  Age: 78 Year
  Sex: Female

DRUGS (1)
  1. ENBREL [Suspect]
     Active Substance: ETANERCEPT
     Indication: Product used for unknown indication
     Dosage: 50 MG, WEEKLY
     Route: 058

REACTIONS (2)
  - Peripheral swelling [Unknown]
  - Limb discomfort [Unknown]
